FAERS Safety Report 9639141 (Version 2)
Quarter: 2013Q4

REPORT INFORMATION
  Report Type: Report from Study
  Country: US (occurrence: US)
  Receive Date: 20131022
  Receipt Date: 20131022
  Transmission Date: 20140711
  Serious: Yes (Life-Threatening, Hospitalization)
  Sender: FDA-Public Use
  Company Number: US-TAKEDA-TPA2013A07392

PATIENT
  Age: 72 Year
  Sex: Male
  Weight: 99 kg

DRUGS (18)
  1. BLINDED ALLOPURINOL [Suspect]
     Indication: HYPERURICAEMIA
     Dosage: UNK, QD
     Route: 048
     Dates: start: 20121026
  2. BLINDED FEBUXOSTAT [Suspect]
     Indication: HYPERURICAEMIA
     Dosage: UNK, QD
     Route: 048
     Dates: start: 20121026
  3. ASPIRIN [Concomitant]
     Indication: CARDIOVASCULAR EVENT PROPHYLAXIS
     Dosage: 81 MG, QD
     Route: 048
     Dates: start: 1990
  4. AMITRIPTYLINE [Concomitant]
     Indication: ANXIETY
     Dosage: 50 MG, QHS
     Route: 048
     Dates: start: 2008
  5. LIDEX 05% [Concomitant]
     Indication: ECZEMA
     Dosage: 1 APPLICATION, BID
     Route: 061
     Dates: start: 2002
  6. HYDROCHLOROTHIAZIDE [Concomitant]
     Indication: CARDIAC FAILURE CONGESTIVE
     Dosage: 25 MG, PRN
     Route: 048
     Dates: start: 1992
  7. FENOFIBRATE [Concomitant]
     Indication: BLOOD CHOLESTEROL INCREASED
     Dosage: 160 MG, QD
     Route: 048
     Dates: start: 201204
  8. AMLODIPINE [Concomitant]
     Indication: HYPERTENSION
     Dosage: 1 DF, QD
     Route: 048
     Dates: start: 2010
  9. CARVEDILOL [Concomitant]
     Indication: CARDIAC FAILURE CONGESTIVE
     Dosage: 12.5 MG, BID
     Route: 048
     Dates: start: 1992, end: 20130723
  10. FISH OIL [Concomitant]
     Indication: MEDICAL DIET
     Dosage: 1000 MG, QD
     Route: 048
     Dates: start: 2000
  11. VITAMIN D                          /00107901/ [Concomitant]
     Indication: MEDICAL DIET
     Dosage: 1 DF, QD
     Route: 048
     Dates: start: 20121001
  12. VITAMIN C                          /00008001/ [Concomitant]
     Indication: MEDICAL DIET
     Dosage: 500 IU, QD
     Route: 048
     Dates: start: 2010
  13. SUPRABETA PROSTATE [Concomitant]
     Indication: POLLAKIURIA
     Dosage: 1 DF, QD
     Route: 048
     Dates: start: 20121024
  14. METFORMIN [Concomitant]
     Indication: DIABETES MELLITUS
     Dosage: 500 MG, QD
     Route: 048
     Dates: start: 2011, end: 20130726
  15. MULTIVITAMIN                       /00097801/ [Concomitant]
     Indication: MEDICAL DIET
     Dosage: 1 DF, QD
     Route: 048
     Dates: start: 20121201
  16. NAPROXEN [Concomitant]
     Indication: BACK PAIN
     Dosage: 500 MG, PRN
     Route: 048
     Dates: start: 2005
  17. NAPROXEN [Concomitant]
     Indication: GOUT
     Dosage: 250 MG, BID
     Route: 048
     Dates: start: 20121026, end: 20130423
  18. AMLODIPINE W/BENAZEPRIL [Concomitant]
     Indication: HYPERTENSION
     Dosage: 5/20 MG, QD
     Route: 048
     Dates: start: 2013, end: 20130723

REACTIONS (1)
  - Coronary artery disease [Recovered/Resolved]
